FAERS Safety Report 7480423-7 (Version None)
Quarter: 2011Q2

REPORT INFORMATION
  Report Type: 
  Country: None (occurrence: None)
  Receive Date: 20110506
  Receipt Date: 20110427
  Transmission Date: 20111010
  Serious: Yes (Other)
  Sender: FDA-Public Use
  Company Number: 2011SP019269

PATIENT
  Age: 36 Year
  Sex: Female
  Weight: 75 kg

DRUGS (2)
  1. LEVOTHYROXINE SODIUM [Concomitant]
  2. IMPLANON [Suspect]
     Indication: CONTRACEPTION
     Dosage: ; SC
     Route: 058
     Dates: start: 20091014

REACTIONS (5)
  - DEPRESSION [None]
  - BREAST MASS [None]
  - VAGINAL HAEMORRHAGE [None]
  - MAMMOPLASTY [None]
  - WEIGHT DECREASED [None]
